FAERS Safety Report 17489545 (Version 1)
Quarter: 2020Q1

REPORT INFORMATION
  Report Type: Spontaneous
  Country: US (occurrence: US)
  Receive Date: 20200221
  Receipt Date: 20200221
  Transmission Date: 20200409
  Serious: Yes (Other)
  Sender: FDA-Public Use
  Company Number: None

PATIENT
  Age: 82 Year
  Sex: Female

DRUGS (1)
  1. OPSUMIT [Suspect]
     Active Substance: MACITENTAN
     Route: 048
     Dates: start: 20170209

REACTIONS (4)
  - Fibrin D dimer increased [None]
  - Chest pain [None]
  - Back pain [None]
  - Pain [None]

NARRATIVE: CASE EVENT DATE: 20200211
